FAERS Safety Report 18528403 (Version 1)
Quarter: 2020Q4

REPORT INFORMATION
  Report Type: Spontaneous
  Country: US (occurrence: US)
  Receive Date: 20201120
  Receipt Date: 20201120
  Transmission Date: 20210114
  Serious: Yes (Hospitalization)
  Sender: FDA-Public Use
  Company Number: US-TEVA-2020-US-1850633

PATIENT
  Age: 49 Year
  Sex: Male
  Weight: 49.89 kg

DRUGS (2)
  1. EPOPROSTENOL. [Suspect]
     Active Substance: EPOPROSTENOL
     Dosage: EPOPROSTENOL DOSE 32 NG PER KG PER MIN
     Route: 042
     Dates: start: 20191101
  2. ADEMPAS [Concomitant]
     Active Substance: RIOCIGUAT
     Route: 065

REACTIONS (1)
  - Inguinal hernia repair [Unknown]

NARRATIVE: CASE EVENT DATE: 20201113
